FAERS Safety Report 16619074 (Version 3)
Quarter: 2019Q4

REPORT INFORMATION
  Report Type: Report from Study
  Country: BR (occurrence: BR)
  Receive Date: 20190723
  Receipt Date: 20191115
  Transmission Date: 20200122
  Serious: Yes (Other)
  Sender: FDA-Public Use
  Company Number: PHHY2018BR005200

PATIENT
  Age: 19 Year
  Sex: Female
  Weight: 56 kg

DRUGS (8)
  1. COSENTYX [Suspect]
     Active Substance: SECUKINUMAB
     Dosage: 300 MG, UNK
     Route: 065
  2. COSENTYX [Suspect]
     Active Substance: SECUKINUMAB
     Dosage: UNK
     Route: 065
     Dates: start: 20180426
  3. COSENTYX [Suspect]
     Active Substance: SECUKINUMAB
     Dosage: UNK UNK, QMO
     Route: 065
     Dates: start: 20190805
  4. COSENTYX [Suspect]
     Active Substance: SECUKINUMAB
     Dosage: UNK
     Route: 065
     Dates: start: 20180412
  5. COSENTYX [Suspect]
     Active Substance: SECUKINUMAB
     Dosage: UNK MG, QMO
     Route: 065
     Dates: start: 20180815
  6. COSENTYX [Suspect]
     Active Substance: SECUKINUMAB
     Dosage: UNK
     Route: 065
     Dates: start: 20190503
  7. COSENTYX [Suspect]
     Active Substance: SECUKINUMAB
     Indication: PSORIATIC ARTHROPATHY
     Dosage: 300 MG, QW
     Route: 058
     Dates: start: 20180329
  8. COSENTYX [Suspect]
     Active Substance: SECUKINUMAB
     Dosage: 300 MG, QMO
     Route: 057
     Dates: start: 201805

REACTIONS (11)
  - Eye inflammation [Recovered/Resolved]
  - Infection [Unknown]
  - Psoriasis [Not Recovered/Not Resolved]
  - Scratch [Unknown]
  - Eye disorder [Recovering/Resolving]
  - Skin plaque [Recovering/Resolving]
  - Infection [Recovered/Resolved]
  - Cyst [Unknown]
  - Wound [Recovering/Resolving]
  - Chalazion [Recovered/Resolved]
  - Eyelid thickening [Recovered/Resolved]

NARRATIVE: CASE EVENT DATE: 2018
